FAERS Safety Report 9258761 (Version 2)
Quarter: 2013Q4

REPORT INFORMATION
  Report Type: Spontaneous
  Country: BR (occurrence: BR)
  Receive Date: 20130426
  Receipt Date: 20131029
  Transmission Date: 20140711
  Serious: Yes (Death, Hospitalization, Other)
  Sender: FDA-Public Use
  Company Number: BR-BRISTOL-MYERS SQUIBB COMPANY-18817635

PATIENT
  Age: 87 Year
  Sex: Female

DRUGS (2)
  1. GLIFAGE XR [Suspect]
     Indication: DIABETES MELLITUS
     Dosage: 500MG TABLET, 1 AT NIGHT
     Dates: start: 201210, end: 201304
  2. ENALAPRIL [Concomitant]
     Indication: HYPERTENSION
     Dosage: TABS BUT SHLD NOT TAKE EVRY DAY

REACTIONS (14)
  - Respiratory failure [Fatal]
  - Metastases to lung [Fatal]
  - Hepatic cancer [Fatal]
  - Dizziness [Unknown]
  - Vomiting [Not Recovered/Not Resolved]
  - Pallor [Unknown]
  - Abdominal pain [Not Recovered/Not Resolved]
  - Nausea [Not Recovered/Not Resolved]
  - Malaise [Unknown]
  - Urinary tract infection [Unknown]
  - Blood bilirubin abnormal [Unknown]
  - Aspartate aminotransferase abnormal [Unknown]
  - Alanine aminotransferase abnormal [Unknown]
  - Transaminases abnormal [Unknown]
